FAERS Safety Report 5193776-X (Version None)
Quarter: 2006Q4

REPORT INFORMATION
  Report Type: 
  Country: None (occurrence: None)
  Receive Date: 20061221
  Receipt Date: 20061206
  Transmission Date: 20070319
  Serious: Yes (Hospitalization)
  Sender: FDA-Public Use
  Company Number: 2006US002867

PATIENT
  Age: 34 Year
  Sex: Female
  Weight: 64.6 kg

DRUGS (3)
  1. PROGRAF [Suspect]
     Indication: PROPHYLAXIS AGAINST TRANSPLANT REJECTION
     Dosage: 3 MG, BID, ORAL
     Route: 048
     Dates: start: 20051009
  2. METOPROLOL SUCCINATE [Concomitant]
  3. MYFORTIC (MYCOPHENOLATE SODIUM) [Concomitant]

REACTIONS (2)
  - ESCHERICHIA BACTERAEMIA [None]
  - PYELONEPHRITIS [None]
